FAERS Safety Report 6186319-5 (Version None)
Quarter: 2009Q2

REPORT INFORMATION
  Report Type: 
  Country: None (occurrence: None)
  Receive Date: 20090511
  Receipt Date: 20090430
  Transmission Date: 20091009
  Serious: Yes (Disabling, Other)
  Sender: FDA-Public Use
  Company Number: PHEH2007US03407

PATIENT
  Sex: Female

DRUGS (14)
  1. AREDIA [Suspect]
  2. ZOMETA [Suspect]
  3. RENAGEL [Concomitant]
     Dosage: 800 MG, UNK
  4. KAYEXALATE [Concomitant]
     Dosage: UNK
  5. THALIDOMIDE [Concomitant]
     Dosage: 50 MG, QID
  6. BACTRIM [Concomitant]
     Dosage: 80 MG, BIW
  7. OXYCONTIN [Concomitant]
     Dosage: 10 MG, UNK
  8. NORVASC [Concomitant]
     Dosage: 10 MG, BID
  9. DIOVAN [Concomitant]
     Dosage: 160 MG, BID
  10. TOPRAL XL [Concomitant]
     Dosage: 50 MG, UNK
  11. CALCIUM CARBONATE [Concomitant]
     Dosage: 400 MG, QID
  12. OMEPRAZOLE [Concomitant]
     Dosage: 20 MG, QD
  13. LORTAB [Concomitant]
     Dosage: 7.5 MG, PRN
  14. STEROIDS NOS [Concomitant]
     Dosage: PULSE THERAPY

REACTIONS (19)
  - ABDOMINAL PAIN UPPER [None]
  - ANAEMIA [None]
  - ANXIETY [None]
  - AZOTAEMIA [None]
  - BARRETT'S OESOPHAGUS [None]
  - COLON POLYPECTOMY [None]
  - COLONIC POLYP [None]
  - DECREASED INTEREST [None]
  - DIVERTICULUM [None]
  - EROSIVE OESOPHAGITIS [None]
  - GASTRITIS [None]
  - GENERAL PHYSICAL HEALTH DETERIORATION [None]
  - HAEMATEMESIS [None]
  - HAEMORRHOIDS [None]
  - HIATUS HERNIA [None]
  - OSTEITIS [None]
  - OSTEONECROSIS [None]
  - PAIN [None]
  - TRANSFUSION [None]
